FAERS Safety Report 18595270 (Version 2)
Quarter: 2021Q3

REPORT INFORMATION
  Report Type: Spontaneous
  Country: US (occurrence: US)
  Receive Date: 20201209
  Receipt Date: 20210810
  Transmission Date: 20211014
  Serious: No
  Sender: FDA-Public Use
  Company Number: US-HORIZON-2020HZN02096

PATIENT
  Age: 50 Year
  Sex: Female
  Weight: 79.02 kg

DRUGS (2)
  1. TEPEZZA [Suspect]
     Active Substance: TEPROTUMUMAB-TRBW
     Indication: BASEDOW^S DISEASE
     Dosage: 800 MG, EVERY 3 WEEKS
     Route: 042
     Dates: start: 20201123
  2. TEPEZZA [Suspect]
     Active Substance: TEPROTUMUMAB-TRBW
     Dosage: 800 MG (INFUSE IV OVER 90 MINUTES THEN EVERY 3 WEEKS)
     Route: 042

REACTIONS (4)
  - Weight decreased [Unknown]
  - Asthenopia [Unknown]
  - Ocular discomfort [Unknown]
  - Headache [Unknown]

NARRATIVE: CASE EVENT DATE: 20201123
